FAERS Safety Report 11469835 (Version 2)
Quarter: 2015Q4

REPORT INFORMATION
  Report Type: Spontaneous
  Country: FR (occurrence: FR)
  Receive Date: 20150908
  Receipt Date: 20151002
  Transmission Date: 20160304
  Serious: Yes (Other)
  Sender: FDA-Public Use
  Company Number: FR-MYLANLABS-2015M1028993

PATIENT

DRUGS (4)
  1. FENTANYL MYLAN 50 MICROGRAMMES/HEURE, DISPOSITIF TRANSDERMIQUE [Suspect]
     Active Substance: FENTANYL
     Indication: PAIN IN JAW
     Dosage: 50 ?G, Q3D
     Route: 062
     Dates: start: 20141029, end: 20150103
  2. XEROQUEL [Concomitant]
     Active Substance: QUETIAPINE FUMARATE
     Indication: PRODUCT USED FOR UNKNOWN INDICATION
     Dosage: 1 DF, QD
     Route: 048
     Dates: start: 201409
  3. SERTRALINE [Concomitant]
     Active Substance: SERTRALINE HYDROCHLORIDE
     Indication: PRODUCT USED FOR UNKNOWN INDICATION
     Dosage: 50 MG, QD
     Route: 048
     Dates: start: 201409
  4. FENTANYL MYLAN 50 MICROGRAMMES/HEURE, DISPOSITIF TRANSDERMIQUE [Suspect]
     Active Substance: FENTANYL
     Dosage: 50 ?G, Q3D
     Route: 062
     Dates: start: 20150602, end: 20150826

REACTIONS (3)
  - Application site reaction [Not Recovered/Not Resolved]
  - Vitiligo [Not Recovered/Not Resolved]
  - Skin depigmentation [Not Recovered/Not Resolved]

NARRATIVE: CASE EVENT DATE: 201502
